FAERS Safety Report 14013242 (Version 1)
Quarter: 2017Q3

REPORT INFORMATION
  Report Type: Spontaneous
  Country: US (occurrence: US)
  Receive Date: 20170926
  Receipt Date: 20170926
  Transmission Date: 20171128
  Serious: No
  Sender: FDA-Public Use
  Company Number: US-MISSION PHARMACAL COMPANY-2027788

PATIENT
  Age: 45 Year
  Sex: Female

DRUGS (4)
  1. THIOLA [Suspect]
     Active Substance: TIOPRONIN
     Indication: NEPHROLITHIASIS
     Route: 065
     Dates: start: 20170402
  2. UNKNOWN ANTIHISTAMINE [Concomitant]
     Active Substance: ANTIHISTAMINES NOS
  3. UNKNOWN ANTIBIOTIC [Concomitant]
     Active Substance: UNSPECIFIED INGREDIENT
  4. PROCARDIA XL [Concomitant]
     Active Substance: NIFEDIPINE
     Route: 065

REACTIONS (6)
  - Fatigue [Unknown]
  - Malaise [Unknown]
  - Flank pain [Unknown]
  - Abdominal pain upper [Unknown]
  - Heart rate increased [Unknown]
  - Hypertension [Unknown]
